FAERS Safety Report 11114081 (Version 1)
Quarter: 2015Q2

REPORT INFORMATION
  Report Type: Spontaneous
  Country: GB (occurrence: GB)
  Receive Date: 20150514
  Receipt Date: 20150514
  Transmission Date: 20150821
  Serious: Yes (Other)
  Sender: FDA-Public Use
  Company Number: GB-BAUSCH-BL-2015-012723

PATIENT
  Age: 40 Year
  Sex: Female

DRUGS (1)
  1. METRONIDAZOLE. [Suspect]
     Active Substance: METRONIDAZOLE
     Indication: UTERINE CERVICAL EROSION
     Route: 048
     Dates: start: 20150415, end: 20150418

REACTIONS (12)
  - Vertigo [Recovering/Resolving]
  - Fatigue [Unknown]
  - Back pain [Recovering/Resolving]
  - Disorientation [Recovered/Resolved with Sequelae]
  - Diarrhoea [Recovering/Resolving]
  - Tinnitus [Not Recovered/Not Resolved]
  - Abdominal pain upper [Not Recovered/Not Resolved]
  - Dizziness [Recovering/Resolving]
  - Arthralgia [Not Recovered/Not Resolved]
  - Lethargy [Recovering/Resolving]
  - Dysgeusia [Recovered/Resolved with Sequelae]
  - Dry mouth [Recovered/Resolved with Sequelae]

NARRATIVE: CASE EVENT DATE: 20150415
